FAERS Safety Report 24118287 (Version 3)
Quarter: 2024Q3

REPORT INFORMATION
  Report Type: Spontaneous
  Country: JP (occurrence: JP)
  Receive Date: 20240722
  Receipt Date: 20240726
  Transmission Date: 20241016
  Serious: Yes (Death, Other)
  Sender: MERCK
  Company Number: JP-MSD-2407JPN002279J

PATIENT
  Age: 47 Year
  Sex: Male

DRUGS (6)
  1. KEYTRUDA [Suspect]
     Active Substance: PEMBROLIZUMAB
     Indication: Head and neck cancer metastatic
     Dosage: UNK
     Route: 065
     Dates: start: 202104
  2. KEYTRUDA [Suspect]
     Active Substance: PEMBROLIZUMAB
     Indication: PD-L1 positive cancer
  3. FLUOROURACIL [Suspect]
     Active Substance: FLUOROURACIL
     Indication: Head and neck cancer metastatic
     Dosage: UNK
     Route: 065
     Dates: start: 202104
  4. FLUOROURACIL [Suspect]
     Active Substance: FLUOROURACIL
     Indication: PD-L1 positive cancer
  5. CISPLATIN [Suspect]
     Active Substance: CISPLATIN
     Indication: Head and neck cancer metastatic
     Dosage: UNK
     Route: 065
     Dates: start: 202104
  6. CISPLATIN [Suspect]
     Active Substance: CISPLATIN
     Indication: PD-L1 positive cancer

REACTIONS (1)
  - Malignant neoplasm progression [Fatal]
